FAERS Safety Report 12101524 (Version 1)
Quarter: 2016Q1

REPORT INFORMATION
  Report Type: Spontaneous
  Country: CA (occurrence: CA)
  Receive Date: 20160222
  Receipt Date: 20160222
  Transmission Date: 20160526
  Serious: Yes (Other)
  Sender: FDA-Public Use
  Company Number: CA-GILEAD-2016-0198889

PATIENT
  Age: 58 Year
  Sex: Male

DRUGS (1)
  1. HARVONI [Suspect]
     Active Substance: LEDIPASVIR\SOFOSBUVIR
     Indication: PRODUCT USED FOR UNKNOWN INDICATION
     Route: 065

REACTIONS (8)
  - Gastric varices haemorrhage [Unknown]
  - Rectal abscess [Unknown]
  - Pneumonia [Unknown]
  - Sepsis [Unknown]
  - Abdominal distension [Unknown]
  - Soft tissue necrosis [Unknown]
  - Scrotal infection [Unknown]
  - Anal infection [Unknown]
